FAERS Safety Report 4566399-0 (Version None)
Quarter: 2005Q1

REPORT INFORMATION
  Report Type: 
  Country: None (occurrence: None)
  Receive Date: 20050201
  Receipt Date: 20050120
  Transmission Date: 20050727
  Serious: Yes (Hospitalization)
  Sender: FDA-Public Use
  Company Number: 200510255FR

PATIENT
  Age: 73 Year
  Sex: Male

DRUGS (7)
  1. LASILIX RETARD [Suspect]
     Route: 048
  2. RAMIPRIL [Suspect]
     Route: 048
  3. TEGRETOL-XR [Suspect]
     Route: 048
  4. LEVOTHYROXINE SODIUM [Suspect]
  5. TRILEPTAL [Suspect]
     Route: 048
  6. SINTROM [Suspect]
     Route: 048
  7. ALDACTONE [Suspect]
     Route: 048

REACTIONS (4)
  - HYPOCHROMIC ANAEMIA [None]
  - ISCHAEMIC STROKE [None]
  - MICROCYTIC ANAEMIA [None]
  - PANCYTOPENIA [None]
